FAERS Safety Report 9060331 (Version 1)
Quarter: 2013Q1

REPORT INFORMATION
  Report Type: Spontaneous
  Country: US (occurrence: US)
  Receive Date: 20130212
  Receipt Date: 20130212
  Transmission Date: 20140127
  Serious: Yes (Other)
  Sender: FDA-Public Use
  Company Number: US-JNJFOC-20130201431

PATIENT
  Age: 66 Year
  Sex: Female
  Weight: 45.36 kg

DRUGS (3)
  1. ROGAINE FOR WOMEN REGULAR STRENGTH [Suspect]
     Route: 061
  2. ROGAINE FOR WOMEN REGULAR STRENGTH [Suspect]
     Indication: ALOPECIA
     Dosage: ONE DROPPERFUL, SINCE ABOUT A YEAR
     Route: 061
     Dates: end: 20130128
  3. RETIN-A [Suspect]
     Indication: PRODUCT USED FOR UNKNOWN INDICATION
     Route: 065

REACTIONS (2)
  - Angioedema [Not Recovered/Not Resolved]
  - Headache [Not Recovered/Not Resolved]
